FAERS Safety Report 9292513 (Version 4)
Quarter: 2014Q1

REPORT INFORMATION
  Report Type: Report from Study
  Country: FR (occurrence: FR)
  Receive Date: 20130516
  Receipt Date: 20140207
  Transmission Date: 20141002
  Serious: Yes (Hospitalization)
  Sender: FDA-Public Use
  Company Number: FR-ASTRAZENECA-2013SE33136

PATIENT
  Age: 30311 Day
  Sex: Female

DRUGS (5)
  1. AZD6140 [Suspect]
     Indication: CORONARY ARTERY DISEASE
     Route: 048
     Dates: start: 20120912, end: 20130505
  2. ASA [Concomitant]
     Route: 048
     Dates: start: 20120911
  3. COVERSYL [Concomitant]
     Indication: ACUTE MYOCARDIAL INFARCTION
     Route: 048
  4. PROZAC [Concomitant]
     Indication: DEPRESSION
     Route: 048
  5. TAHOR [Concomitant]
     Indication: DYSLIPIDAEMIA
     Route: 048

REACTIONS (1)
  - Microcytic anaemia [Recovered/Resolved]
